FAERS Safety Report 20279530 (Version 1)
Quarter: 2021Q4

REPORT INFORMATION
  Report Type: Spontaneous
  Country: US (occurrence: None)
  Receive Date: 20211230
  Receipt Date: 20211230
  Transmission Date: 20220304
  Serious: Yes (Hospitalization)
  Sender: FDA-Public Use
  Company Number: None

PATIENT
  Age: 77 Year
  Sex: Female

DRUGS (1)
  1. PROCRIT [Suspect]
     Active Substance: ERYTHROPOIETIN
     Indication: Anaemia
     Dosage: FREQUENCY : WEEKLY;?
     Route: 058
     Dates: start: 20211223

REACTIONS (2)
  - Full blood count decreased [None]
  - Hospitalisation [None]

NARRATIVE: CASE EVENT DATE: 20211219
